FAERS Safety Report 9114945 (Version 1)
Quarter: 2013Q1

REPORT INFORMATION
  Report Type: Spontaneous
  Country: US (occurrence: None)
  Receive Date: 20130220
  Receipt Date: 20130220
  Transmission Date: 20140127
  Serious: Yes (Other)
  Sender: FDA-Public Use
  Company Number: None

PATIENT
  Age: 62 Year
  Sex: Male
  Weight: 112.04 kg

DRUGS (1)
  1. PROVENGE [Suspect]
     Route: 042
     Dates: start: 20130218, end: 20130218

REACTIONS (2)
  - Chills [None]
  - Infusion related reaction [None]
